FAERS Safety Report 8820687 (Version 3)
Quarter: 2013Q1

REPORT INFORMATION
  Report Type: Report from Study
  Country: US (occurrence: US)
  Receive Date: 20121002
  Receipt Date: 20130121
  Transmission Date: 20140127
  Serious: No
  Sender: FDA-Public Use
  Company Number: US-VERTEX PHARMACEUTICAL INC.-2012-020511

PATIENT
  Sex: Male
  Weight: 90 kg

DRUGS (6)
  1. VX-950 (TELAPREVIR) [Suspect]
     Indication: HEPATITIS C
     Dosage: 750 MG, TID
     Route: 048
     Dates: start: 20120813
  2. PEGASYS [Suspect]
     Indication: HEPATITIS C
     Dosage: 180 ?G, QW
     Route: 058
     Dates: start: 20120813
  3. PEGASYS [Suspect]
     Dosage: 45 ?G, QW
     Route: 058
  4. RIBASPHERE [Suspect]
     Indication: HEPATITIS C
     Dosage: 200 MG, BID
     Route: 048
     Dates: start: 20120813
  5. RIBASPHERE [Suspect]
     Dosage: 200 MG, QOD
     Route: 048
  6. PROCRIT                            /00928302/ [Concomitant]
     Indication: ANAEMIA
     Dosage: 40000 UT, QW
     Route: 058
     Dates: start: 201209

REACTIONS (8)
  - Off label use [Unknown]
  - Laboratory test abnormal [Unknown]
  - Abdominal pain upper [Unknown]
  - Abdominal distension [Unknown]
  - Injection site rash [Unknown]
  - Constipation [Unknown]
  - Nausea [Unknown]
  - Platelet count decreased [Unknown]
